FAERS Safety Report 6671752-5 (Version None)
Quarter: 2010Q2

REPORT INFORMATION
  Report Type: 
  Country: None (occurrence: None)
  Receive Date: 20100407
  Receipt Date: 20100406
  Transmission Date: 20101027
  Serious: Yes (Hospitalization, Other)
  Sender: FDA-Public Use
  Company Number: FR-ROXANE LABORATORIES, INC.-2010-RO-00377RO

PATIENT
  Age: 33 Year
  Sex: Female

DRUGS (1)
  1. BUPRENORPHINE HYDROCHLORIDE [Suspect]
     Indication: DRUG ABUSE
     Route: 048

REACTIONS (4)
  - ANEURYSM [None]
  - EMBOLISM [None]
  - INTENTIONAL DRUG MISUSE [None]
  - SEGMENTED HYALINISING VASCULITIS [None]
